FAERS Safety Report 8083492 (Version 6)
Quarter: 2012Q4

REPORT INFORMATION
  Report Type: 
  Country: JP (occurrence: JP)
  Receive Date: 20110810
  Receipt Date: 20121018
  Transmission Date: 20130627
  Serious: Yes (Death, Hospitalization)
  Sender: FDA-Public Use
  Company Number: JP-BAYER-2011-070290

PATIENT
  Age: 62 Year
  Sex: Male
  Weight: 65 kg

DRUGS (7)
  1. NEXAVAR [Suspect]
     Indication: HEPATIC NEOPLASM MALIGNANT
     Dosage: 400 mg, QD
     Route: 048
     Dates: start: 20110613, end: 20110626
  2. NEXAVAR [Suspect]
     Indication: HEPATIC NEOPLASM MALIGNANT
     Dosage: 800 mg, UNK
     Route: 048
     Dates: start: 20110627, end: 20110731
  3. NAUZELIN [Concomitant]
     Dosage: 30 mg, UNK
     Route: 048
  4. URSO [Concomitant]
     Dosage: 1800 mg, UNK
     Route: 048
  5. NORVASC [Concomitant]
     Route: 048
  6. PARIET [Concomitant]
     Dosage: 20 mg, UNK
     Route: 048
  7. PYDOXAL [Concomitant]
     Dosage: 90 mg, UNK
     Route: 048

REACTIONS (4)
  - Haematochezia [Recovering/Resolving]
  - Gastroenteritis radiation [Recovering/Resolving]
  - Faeces discoloured [Recovering/Resolving]
  - Hepatic cancer [Fatal]
